FAERS Safety Report 9008547 (Version 5)
Quarter: 2013Q1

REPORT INFORMATION
  Report Type: Spontaneous
  Country: US (occurrence: US)
  Receive Date: 20130111
  Receipt Date: 20130311
  Transmission Date: 20140127
  Serious: Yes (Hospitalization, Other)
  Sender: FDA-Public Use
  Company Number: US-AMGEN-USASP2013001559

PATIENT
  Age: 33 Year
  Sex: Female
  Weight: 68.3 kg

DRUGS (9)
  1. EPOGEN [Suspect]
     Indication: RENAL FAILURE CHRONIC
     Dosage: 10000 UNIT, 2 TIMES/WK
     Route: 058
  2. EPOGEN [Suspect]
     Indication: ANAEMIA
  3. PREDNISONE [Concomitant]
     Indication: MIXED CONNECTIVE TISSUE DISEASE
     Dosage: 10 MG, QD
     Route: 048
  4. PRILOSEC                           /00661201/ [Concomitant]
     Indication: GASTROOESOPHAGEAL REFLUX DISEASE
     Dosage: 20 MG, QD
     Route: 048
  5. FOLATE [Concomitant]
     Indication: ANAEMIA
     Dosage: 5 MG, QD
     Route: 048
  6. BENAZEPRIL [Concomitant]
     Indication: HYPERTENSION
     Dosage: 40 MG, QD
     Route: 048
  7. CELLCEPT                           /01275102/ [Concomitant]
     Indication: LUPUS NEPHRITIS
     Dosage: 1000 MG, BID
     Route: 048
  8. FOSRENOL [Concomitant]
     Indication: DIALYSIS
     Dosage: 1000 MG, TID
     Route: 048
  9. LEVOTHYROXINE [Concomitant]
     Indication: HYPOTHYROIDISM
     Dosage: 175 MG, QD
     Route: 048

REACTIONS (4)
  - Anaemia [Not Recovered/Not Resolved]
  - Bone marrow failure [Unknown]
  - Blood erythropoietin abnormal [Unknown]
  - Therapeutic response decreased [Unknown]
